FAERS Safety Report 5673153-5 (Version None)
Quarter: 2008Q1

REPORT INFORMATION
  Report Type: 
  Country: None (occurrence: None)
  Receive Date: 20080317
  Receipt Date: 20080307
  Transmission Date: 20080703
  Serious: Yes (Death)
  Sender: FDA-Public Use
  Company Number: JPI-P-003151

PATIENT
  Age: 49 Year
  Sex: Female

DRUGS (5)
  1. XYREM (OXYBATE SODIUM) (500 MILLIGRAM/MILLITERS) [Suspect]
     Indication: DRUG USE FOR UNKNOWN INDICATION
     Dosage: ORAL
     Route: 048
  2. UNSPECIFIED MEDICATIONS FOR HIGH BLOOD PRESSURE (ANTIHYPERTENSIVES) [Concomitant]
  3. OXYCODONE HCL (OXYCODONE HYDROCHLORIDE) [Concomitant]
  4. OXYCODONE HCL [Concomitant]
  5. UNSPECIFIED MEDICATIONS (ALL OTHER THERAPEUTIC PRODUCTS) [Concomitant]

REACTIONS (2)
  - MEMORY IMPAIRMENT [None]
  - OVERDOSE [None]
